FAERS Safety Report 18941655 (Version 1)
Quarter: 2021Q1

REPORT INFORMATION
  Report Type: Spontaneous
  Country: DE (occurrence: DE)
  Receive Date: 20210225
  Receipt Date: 20210225
  Transmission Date: 20210420
  Serious: Yes (Hospitalization)
  Sender: FDA-Public Use
  Company Number: DE-TEVA-2021-DE-1883039

PATIENT
  Age: 54 Year
  Sex: Male
  Weight: 92 kg

DRUGS (1)
  1. CLOZAPIN?RATIOPHARM 25 MG TABLETTEN [Suspect]
     Active Substance: CLOZAPINE
     Indication: SCHIZOPHRENIA
     Dosage: 50 MILLIGRAM DAILY; 2 TABLETS AT NIGHT AROUND 9 P.M
     Route: 048
     Dates: start: 20201110

REACTIONS (1)
  - Antipsychotic drug level decreased [Unknown]

NARRATIVE: CASE EVENT DATE: 20201208
